FAERS Safety Report 5341641-7 (Version None)
Quarter: 2007Q2

REPORT INFORMATION
  Report Type: 
  Country: None (occurrence: None)
  Receive Date: 20070530
  Receipt Date: 20070518
  Transmission Date: 20071010
  Serious: Yes (Hospitalization)
  Sender: FDA-Public Use
  Company Number: 2007AL002020

PATIENT
  Age: 61 Year
  Sex: Female

DRUGS (2)
  1. METFORMIN HYDROCHLORIDE [Suspect]
     Indication: DIABETES MELLITUS
     Dosage: 3 GR;QD;PO
     Route: 048
  2. FLUVASTATIN [Concomitant]

REACTIONS (4)
  - METABOLIC ACIDOSIS [None]
  - OLIGURIA [None]
  - PANCREATITIS ACUTE [None]
  - RENAL FAILURE [None]
